FAERS Safety Report 9475724 (Version 2)
Quarter: 2013Q3

REPORT INFORMATION
  Report Type: Spontaneous
  Country: IT (occurrence: IT)
  Receive Date: 20130826
  Receipt Date: 20130830
  Transmission Date: 20140515
  Serious: Yes (Death)
  Sender: FDA-Public Use
  Company Number: PHHY2013IT091580

PATIENT
  Age: 37 Year
  Sex: Male

DRUGS (14)
  1. EXJADE [Suspect]
     Indication: IRON OVERLOAD
     Dosage: 40 MG/KG, DAILY
     Route: 048
     Dates: start: 20120101
  2. DIGOXIN [Concomitant]
     Dosage: 125 MG, UNK
     Route: 048
  3. BISOPROLOL + HCT MERCK [Concomitant]
     Dosage: 5 MG, UNK
     Route: 048
  4. VERAPAMIL [Concomitant]
     Dosage: 120 MG, UNK
  5. TELMISARTAN [Concomitant]
     Dosage: 80 MG, UNK
     Route: 048
  6. ACENOCUMAROL [Concomitant]
     Dosage: UNK UKN, UNK
     Route: 048
  7. ACETYLSALICYLIC ACID [Concomitant]
     Dosage: UNK UKN, UNK
     Route: 048
  8. ALLOPURINOL [Concomitant]
     Dosage: UNK UKN, UNK
     Route: 048
  9. LEVOTHYROXINE [Concomitant]
     Dosage: 100 MG, UNK
     Route: 048
  10. INSULIN [Concomitant]
     Dosage: UNK UKN, UNK
  11. CALCITRIOL [Concomitant]
     Dosage: 5 MG, UNK
     Route: 048
  12. TAMSULOSIN [Concomitant]
     Dosage: 4 MG, UNK
     Route: 048
  13. OMEPRAZOLE [Concomitant]
     Dosage: UNK UKN, UNK
     Route: 048
  14. FUROSEMIDE [Concomitant]
     Dosage: 25 MG, UNK
     Route: 048

REACTIONS (1)
  - Completed suicide [Fatal]
